FAERS Safety Report 12915977 (Version 1)
Quarter: 2016Q4

REPORT INFORMATION
  Report Type: Spontaneous
  Country: US (occurrence: US)
  Receive Date: 20161107
  Receipt Date: 20161107
  Transmission Date: 20170207
  Serious: No
  Sender: FDA-Public Use
  Company Number: US-ACCORD-042500

PATIENT
  Age: 50 Year
  Sex: Male
  Weight: 97.73 kg

DRUGS (1)
  1. ESCITALOPRAM [Suspect]
     Active Substance: ESCITALOPRAM OXALATE
     Indication: ANXIETY
     Dosage: DOSE/STRENGTH: 10 MG
     Route: 048

REACTIONS (1)
  - Drug ineffective [Unknown]
